FAERS Safety Report 5066139-5 (Version None)
Quarter: 2006Q3

REPORT INFORMATION
  Report Type: 
  Country: None (occurrence: None)
  Receive Date: 20060725
  Receipt Date: 20060704
  Transmission Date: 20061208
  Serious: Yes (Other)
  Sender: FDA-Public Use
  Company Number: AT200604001179

PATIENT
  Age: 65 Year
  Sex: Female

DRUGS (1)
  1. EVISTA [Suspect]
     Indication: OSTEOPOROSIS
     Dosage: 60 MG, DAILY (1/D) ORAL
     Route: 048
     Dates: start: 20060323

REACTIONS (5)
  - CONTRAST MEDIA REACTION [None]
  - FEELING ABNORMAL [None]
  - HYPERTHYROIDISM [None]
  - THYROID FUNCTION TEST ABNORMAL [None]
  - THYROXINE INCREASED [None]
